FAERS Safety Report 9677171 (Version 1)
Quarter: 2013Q4

REPORT INFORMATION
  Report Type: Spontaneous
  Country: US (occurrence: US)
  Receive Date: 20131108
  Receipt Date: 20131108
  Transmission Date: 20140711
  Serious: No
  Sender: FDA-Public Use
  Company Number: US-009507513-1311USA001799

PATIENT
  Age: 5 Year
  Sex: Female

DRUGS (3)
  1. ASMANEX TWISTHALER [Suspect]
     Indication: COUGH
     Dosage: 1 PUFF, QD
     Route: 048
     Dates: start: 20131022
  2. ASMANEX TWISTHALER [Suspect]
     Indication: ASTHMA
  3. SINGULAIR [Concomitant]

REACTIONS (3)
  - Drug ineffective [Unknown]
  - Product container issue [Unknown]
  - Cough [Unknown]
